FAERS Safety Report 4417980-0 (Version None)
Quarter: 2004Q3

REPORT INFORMATION
  Report Type: 
  Country: None (occurrence: None)
  Receive Date: 20040804
  Receipt Date: 20040713
  Transmission Date: 20050211
  Serious: No
  Sender: FDA-Public Use
  Company Number: A02200402242

PATIENT
  Age: 22 Year
  Sex: Female

DRUGS (1)
  1. STILNOX-(ZOLPIDEM)- TABLET- 10 MG [Suspect]
     Indication: SEXUAL ABUSE
     Route: 048
     Dates: start: 20040101, end: 20040101

REACTIONS (2)
  - AMNESIA [None]
  - VICTIM OF SEXUAL ABUSE [None]
